FAERS Safety Report 9881538 (Version 1)
Quarter: 2014Q1

REPORT INFORMATION
  Report Type: Spontaneous
  Country: US (occurrence: US)
  Receive Date: 20140207
  Receipt Date: 20140207
  Transmission Date: 20141002
  Serious: No
  Sender: FDA-Public Use
  Company Number: US-MYLANLABS-2013S1023918

PATIENT
  Sex: Male

DRUGS (1)
  1. MORPHINE SULFATE EXTENDED-RELEASE TABLETS [Suspect]
     Route: 048

REACTIONS (1)
  - Malaise [Not Recovered/Not Resolved]
